FAERS Safety Report 9320645 (Version 8)
Quarter: 2014Q3

REPORT INFORMATION
  Report Type: Report from Study
  Country: CZ (occurrence: CZ)
  Receive Date: 20130531
  Receipt Date: 20140728
  Transmission Date: 20150326
  Serious: Yes (Hospitalization, Other)
  Sender: FDA-Public Use
  Company Number: CZ-BIOGENIDEC-2013BI045606

PATIENT
  Age: 48 Year
  Sex: Female
  Weight: 82 kg

DRUGS (5)
  1. SIMGAL [Concomitant]
  2. NATALIZUMAB [Suspect]
     Active Substance: NATALIZUMAB
     Indication: MULTIPLE SCLEROSIS
     Route: 042
     Dates: start: 20060329, end: 20130515
  3. VESICARE [Concomitant]
     Active Substance: SOLIFENACIN SUCCINATE
  4. AMPRILAN [Concomitant]
     Active Substance: RAMIPRIL
  5. CURAM [Concomitant]
     Active Substance: AMOXICILLIN\CLAVULANATE POTASSIUM
     Dates: start: 20130508, end: 20130515

REACTIONS (2)
  - Progressive multifocal leukoencephalopathy [Recovered/Resolved]
  - Immune reconstitution inflammatory syndrome [Recovered/Resolved]

NARRATIVE: CASE EVENT DATE: 20130515
